FAERS Safety Report 9275460 (Version 1)
Quarter: 2013Q2

REPORT INFORMATION
  Report Type: Spontaneous
  Country: US (occurrence: US)
  Receive Date: 20130507
  Receipt Date: 20130507
  Transmission Date: 20140414
  Serious: Yes (Other)
  Sender: FDA-Public Use
  Company Number: US-PFIZER INC-2013137075

PATIENT
  Age: 55 Year
  Sex: Female
  Weight: 39 kg

DRUGS (4)
  1. CELEBREX [Suspect]
     Dosage: UNK
  2. VALACICLOVIR [Suspect]
     Indication: HERPES ZOSTER
     Dosage: 1 G, DAILY
  3. VALTREX [Suspect]
     Indication: HERPES ZOSTER
     Dosage: 1G DAILY
     Dates: start: 1994
  4. PREMPRO [Concomitant]
     Indication: MENOPAUSE
     Dosage: 0.625/2.5 MG DAILY

REACTIONS (12)
  - Cerebrovascular accident [Unknown]
  - Drug ineffective [Unknown]
  - Photosensitivity reaction [Unknown]
  - Back disorder [Unknown]
  - Hypertension [Unknown]
  - Burning sensation [Unknown]
  - General physical health deterioration [Unknown]
  - Insomnia [Unknown]
  - Thyroid disorder [Unknown]
  - Migraine [Unknown]
  - Weight increased [Unknown]
  - Tendon disorder [Unknown]
